FAERS Safety Report 21017173 (Version 1)
Quarter: 2022Q2

REPORT INFORMATION
  Report Type: Spontaneous
  Country: US (occurrence: US)
  Receive Date: 20220628
  Receipt Date: 20220628
  Transmission Date: 20220720
  Serious: No
  Sender: FDA-Public Use
  Company Number: US-PFIZER INC-202200887367

PATIENT
  Sex: Male

DRUGS (2)
  1. DOFETILIDE [Suspect]
     Active Substance: DOFETILIDE
     Indication: Arrhythmia
     Dosage: UNK
  2. DOFETILIDE [Suspect]
     Active Substance: DOFETILIDE
     Indication: Atrial fibrillation

REACTIONS (1)
  - Drug ineffective [Unknown]
